FAERS Safety Report 8132977-5 (Version None)
Quarter: 2012Q1

REPORT INFORMATION
  Report Type: 
  Country: None (occurrence: None)
  Receive Date: 20120213
  Receipt Date: 20120208
  Transmission Date: 20120608
  Serious: Yes (Other)
  Sender: FDA-Public Use
  Company Number: US-ROCHE-791046

PATIENT
  Sex: Female
  Weight: 48.578 kg

DRUGS (3)
  1. ACCUTANE [Suspect]
     Dates: start: 19960730, end: 19970116
  2. ACCUTANE [Suspect]
     Dates: start: 19950829, end: 19960104
  3. ACCUTANE [Suspect]
     Indication: ACNE
     Route: 065
     Dates: start: 19940101, end: 19950101

REACTIONS (5)
  - INFLAMMATORY BOWEL DISEASE [None]
  - DEPRESSION [None]
  - STRESS [None]
  - IRRITABLE BOWEL SYNDROME [None]
  - COLITIS ULCERATIVE [None]
